FAERS Safety Report 7042705-2 (Version None)
Quarter: 2010Q4

REPORT INFORMATION
  Report Type: 
  Country: None (occurrence: None)
  Receive Date: 20101013
  Receipt Date: 20091030
  Transmission Date: 20110411
  Serious: No
  Sender: FDA-Public Use
  Company Number: US-ASTRAZENECA-2009SE23750

PATIENT
  Age: 30960 Day
  Sex: Female
  Weight: 68 kg

DRUGS (2)
  1. SYMBICORT [Suspect]
     Route: 055
  2. AVELOX [Concomitant]
     Route: 048
     Dates: start: 20091029, end: 20091104

REACTIONS (1)
  - PNEUMONIA [None]
